FAERS Safety Report 7419353-5 (Version None)
Quarter: 2011Q2

REPORT INFORMATION
  Report Type: 
  Country: None (occurrence: None)
  Receive Date: 20110415
  Receipt Date: 20110406
  Transmission Date: 20111010
  Serious: Yes (Hospitalization, Other)
  Sender: FDA-Public Use
  Company Number: US-MERCK-1006USA03121

PATIENT
  Age: 74 Year
  Sex: Female
  Weight: 70 kg

DRUGS (5)
  1. FOSAMAX [Suspect]
     Route: 048
     Dates: start: 20081201
  2. FOSAMAX PLUS D [Suspect]
     Indication: OSTEOPOROSIS
     Route: 048
     Dates: start: 20060101, end: 20081204
  3. FOSAMAX [Suspect]
     Indication: HIP ARTHROPLASTY
     Route: 048
     Dates: start: 20060101, end: 20100306
  4. FOSAMAX [Suspect]
     Indication: OSTEOPOROSIS
     Route: 048
     Dates: start: 20060101, end: 20100306
  5. COUMADIN [Concomitant]
     Route: 048

REACTIONS (27)
  - ANAEMIA [None]
  - ARTHRALGIA [None]
  - LOW TURNOVER OSTEOPATHY [None]
  - FIBRIN D DIMER INCREASED [None]
  - GAIT DISTURBANCE [None]
  - SUBCUTANEOUS HAEMATOMA [None]
  - CARDIAC VALVE DISEASE [None]
  - POSTMENOPAUSE [None]
  - JOINT INJURY [None]
  - IRON DEFICIENCY ANAEMIA [None]
  - COLITIS [None]
  - URINARY TRACT INFECTION [None]
  - PARAESTHESIA [None]
  - RECTAL HAEMORRHAGE [None]
  - CYST [None]
  - OSTEONECROSIS [None]
  - ARTHROPATHY [None]
  - OEDEMA PERIPHERAL [None]
  - TREATMENT NONCOMPLIANCE [None]
  - HYPERTENSION [None]
  - FEMUR FRACTURE [None]
  - BREAST CANCER [None]
  - FALL [None]
  - STASIS DERMATITIS [None]
  - LYMPHOEDEMA [None]
  - SKIN ULCER [None]
  - CONSTIPATION [None]
